FAERS Safety Report 5254908-8 (Version None)
Quarter: 2007Q1

REPORT INFORMATION
  Report Type: 
  Country: None (occurrence: None)
  Receive Date: 20070302
  Receipt Date: 20070302
  Transmission Date: 20070707
  Serious: Yes (Other)
  Sender: FDA-Public Use
  Company Number: None

PATIENT
  Sex: Female
  Weight: 53 kg

DRUGS (1)
  1. OXYCODONE HCL [Suspect]
     Dosage: ONE PILL ONE TIME ONLY

REACTIONS (1)
  - DYSPNOEA [None]
